FAERS Safety Report 8042898-4 (Version None)
Quarter: 2012Q1

REPORT INFORMATION
  Report Type: 
  Country: None (occurrence: None)
  Receive Date: 20120112
  Receipt Date: 20120110
  Transmission Date: 20120608
  Serious: Yes (Hospitalization)
  Sender: FDA-Public Use
  Company Number: JP-SANOFI-AVENTIS-2012SA001601

PATIENT
  Age: 64 Year
  Sex: Female
  Weight: 39 kg

DRUGS (4)
  1. OXALIPLATIN [Suspect]
     Route: 041
  2. GIMERACIL/OTERACIL POTASSIUM/TEGAFUR [Suspect]
     Indication: GASTRIC CANCER
     Route: 048
     Dates: start: 20111007, end: 20120104
  3. GIMERACIL/OTERACIL POTASSIUM/TEGAFUR [Suspect]
     Route: 048
  4. OXALIPLATIN [Suspect]
     Indication: GASTRIC CANCER
     Route: 041
     Dates: start: 20111007, end: 20111222

REACTIONS (2)
  - FEBRILE NEUTROPENIA [None]
  - PNEUMATOSIS INTESTINALIS [None]
